FAERS Safety Report 9377094 (Version 2)
Quarter: 2013Q3

REPORT INFORMATION
  Report Type: Spontaneous
  Country: US (occurrence: US)
  Receive Date: 20130701
  Receipt Date: 20130708
  Transmission Date: 20140515
  Serious: Yes (Other)
  Sender: FDA-Public Use
  Company Number: US-PFIZER INC-2013193073

PATIENT
  Age: 82 Year
  Sex: Male

DRUGS (4)
  1. CELEBREX [Suspect]
     Dosage: UNK
  2. PANTOPRAZOLE [Suspect]
     Dosage: UNK
  3. LISINOPRIL [Suspect]
     Dosage: UNK
  4. METFORMIN HCL [Suspect]
     Dosage: UNK

REACTIONS (1)
  - Glaucoma [Unknown]
